FAERS Safety Report 9925880 (Version 1)
Quarter: 2014Q1

REPORT INFORMATION
  Report Type: Spontaneous
  Country: US (occurrence: US)
  Receive Date: 20140226
  Receipt Date: 20140226
  Transmission Date: 20141002
  Serious: Yes (Other)
  Sender: FDA-Public Use
  Company Number: US-FRI-1000054575

PATIENT
  Age: 52 Year
  Sex: Female

DRUGS (4)
  1. VIIBRYD [Suspect]
     Indication: DEPRESSION
     Dosage: 10 MG
     Dates: start: 201312, end: 201312
  2. VIIBRYD [Suspect]
     Indication: DEPRESSION
     Dosage: 20 MG
     Dates: start: 201312, end: 201402
  3. LEVOTHYROXINE [Concomitant]
     Indication: HYPOTHYROIDISM
  4. PROVIGIL [Concomitant]
     Indication: SLEEP APNOEA SYNDROME

REACTIONS (2)
  - Colitis ulcerative [Recovering/Resolving]
  - Diarrhoea [Recovering/Resolving]
